FAERS Safety Report 18774075 (Version 3)
Quarter: 2021Q1

REPORT INFORMATION
  Report Type: Other
  Country: GB (occurrence: GB)
  Receive Date: 20210122
  Receipt Date: 20210225
  Transmission Date: 20210419
  Serious: Yes (Hospitalization, Other)
  Sender: FDA-Public Use
  Company Number: GB-HORMOSAN PHARMA GMBH-2021-00467

PATIENT
  Age: 74 Year
  Sex: Female

DRUGS (4)
  1. LEVETIRACETAM FILM COATED TABLETS [Suspect]
     Active Substance: LEVETIRACETAM
     Dosage: 1500 MILLIGRAM, QD
     Route: 048
  2. LEVETIRACETAM FILM COATED TABLETS [Suspect]
     Active Substance: LEVETIRACETAM
     Indication: PRODUCT USED FOR UNKNOWN INDICATION
     Dosage: 750 MILLIGRAM, BID
     Route: 048
     Dates: start: 20200315
  3. DEXAMETHASONE. [Concomitant]
     Active Substance: DEXAMETHASONE
     Indication: BRAIN NEOPLASM
     Dosage: 4 MILLIGRAM, QD
     Route: 048
     Dates: start: 20201116
  4. LANSOPRAZOLE. [Concomitant]
     Active Substance: LANSOPRAZOLE
     Indication: BRAIN NEOPLASM
     Dosage: 20 MILLIGRAM, QD
     Route: 048
     Dates: start: 20201116

REACTIONS (2)
  - Abdominal pain [Not Recovered/Not Resolved]
  - Intestinal perforation [Not Recovered/Not Resolved]

NARRATIVE: CASE EVENT DATE: 20201206
